FAERS Safety Report 21617337 (Version 4)
Quarter: 2023Q2

REPORT INFORMATION
  Report Type: Report from Study
  Country: TR (occurrence: TR)
  Receive Date: 20221118
  Receipt Date: 20230425
  Transmission Date: 20230721
  Serious: Yes (Hospitalization)
  Sender: FDA-Public Use
  Company Number: TR-ABBVIE-4205651

PATIENT
  Age: 78 Year
  Sex: Female

DRUGS (2)
  1. CARBIDOPA\LEVODOPA [Suspect]
     Active Substance: CARBIDOPA\LEVODOPA
     Indication: Parkinson^s disease
     Dosage: MORNING DOSE (ML): 5.70 CONTINIOUS DOSE (ML): 6.30 EXTRA DOSE (ML): 1.50
     Route: 050
     Dates: start: 20211112, end: 20230420
  2. CARBIDOPA\LEVODOPA [Suspect]
     Active Substance: CARBIDOPA\LEVODOPA
     Dosage: MORNING DOSE (ML): 5.70 CONTINIOUS DOSE (ML): 6.30 EXTRA DOSE (ML): 1.50
     Route: 050
     Dates: start: 20230420

REACTIONS (4)
  - Rheumatoid arthritis [Recovered/Resolved]
  - Muscle rigidity [Not Recovered/Not Resolved]
  - Device occlusion [Recovered/Resolved]
  - Akinesia [Not Recovered/Not Resolved]

NARRATIVE: CASE EVENT DATE: 20221001
